FAERS Safety Report 7676854-2 (Version None)
Quarter: 2011Q3

REPORT INFORMATION
  Report Type: 
  Country: None (occurrence: None)
  Receive Date: 20110811
  Receipt Date: 20110808
  Transmission Date: 20111222
  Serious: Yes (Other)
  Sender: FDA-Public Use
  Company Number: US-PFIZER INC-2011029911

PATIENT
  Sex: Female

DRUGS (2)
  1. GEODON [Suspect]
     Indication: PSYCHOTIC DISORDER
  2. GEODON [Suspect]
     Indication: BIPOLAR DISORDER
     Dosage: 80 MG, 2X/DAY
     Route: 048
     Dates: start: 20070301

REACTIONS (14)
  - RESTLESSNESS [None]
  - LOSS OF CONSCIOUSNESS [None]
  - EYE MOVEMENT DISORDER [None]
  - MOVEMENT DISORDER [None]
  - TARDIVE DYSKINESIA [None]
  - METABOLIC DISORDER [None]
  - CATATONIA [None]
  - INSOMNIA [None]
  - WEIGHT INCREASED [None]
  - PHOTOPHOBIA [None]
  - BLEPHAROSPASM [None]
  - DYSTONIA [None]
  - DISCOMFORT [None]
  - AKATHISIA [None]
